FAERS Safety Report 10266643 (Version 1)
Quarter: 2014Q2

REPORT INFORMATION
  Report Type: Spontaneous
  Country: FR (occurrence: FR)
  Receive Date: 20140629
  Receipt Date: 20140629
  Transmission Date: 20141212
  Serious: Yes (Hospitalization)
  Sender: FDA-Public Use
  Company Number: PHHY2014FR077598

PATIENT
  Age: 91 Year
  Sex: Male

DRUGS (8)
  1. ESIDREX [Suspect]
     Dosage: UNK UKN, UNK
     Route: 048
     Dates: start: 201404
  2. TRIMEBUTINE [Suspect]
     Dosage: UNK UKN, UNK
     Route: 048
     Dates: start: 201404
  3. PREVISCAN [Suspect]
     Dosage: UNK UKN, UNK
     Route: 048
  4. APROVEL [Concomitant]
     Dosage: UNK UKN, UNK
  5. LOXEN [Concomitant]
     Dosage: UNK UKN, UNK
  6. LORAZEPAM [Concomitant]
     Dosage: UNK UKN, UNK
  7. EUPANTOL [Concomitant]
     Dosage: UNK UKN, UNK
  8. TRANSIPEG [Concomitant]
     Dosage: UNK UKN, UNK

REACTIONS (1)
  - Purpura [Unknown]
